FAERS Safety Report 17771656 (Version 1)
Quarter: 2020Q2

REPORT INFORMATION
  Report Type: Spontaneous
  Country: GB (occurrence: GB)
  Receive Date: 20200512
  Receipt Date: 20200512
  Transmission Date: 20200714
  Serious: Yes (Hospitalization, Other)
  Sender: FDA-Public Use
  Company Number: GB-DENTSPLY-2020SCDP000165

PATIENT
  Age: 35 Year
  Sex: Female
  Weight: 56 kg

DRUGS (4)
  1. CO-PHENYLCAINE [Suspect]
     Active Substance: LIDOCAINE\PHENYLEPHRINE
     Indication: LOCAL ANAESTHESIA
     Dosage: 1 TOTAL, VOLUME ADMINISTERED 2.5 ML; 12.5 MG LIDOCAINE
     Route: 045
  2. LIDOCAINE. [Suspect]
     Active Substance: LIDOCAINE
     Dosage: LIDOCAINE 4%, 200 MILLIGRAM, 1 TOTAL,5 ML (VOLUME ADMINISTERED) NEBULISER
     Route: 055
  3. LIDOCAINE. [Suspect]
     Active Substance: LIDOCAINE
     Dosage: LIDOCAINE 10%, 40 MILLIGRAM, 1 TOTAL, VOLUME ADMINISTERED 4X1 ML
  4. LIDOCAINE. [Suspect]
     Active Substance: LIDOCAINE
     Indication: LOCAL ANAESTHESIA
     Dosage: LIDOCAINE 4%, 120 MG, 1 TOTAL, VOLUME ADMINISTERED 5 ML 4% LIDOCAINE TOPICALLY IN 0.1 ML DOSES
     Route: 061

REACTIONS (13)
  - Agitation [Recovered/Resolved]
  - Somnolence [Recovered/Resolved]
  - Vomiting [Recovered/Resolved]
  - Local anaesthetic systemic toxicity [Recovered/Resolved]
  - Dizziness [Recovered/Resolved]
  - Drug-disease interaction [Unknown]
  - Tinnitus [Recovered/Resolved]
  - Dysgeusia [Recovered/Resolved]
  - Nausea [Recovered/Resolved]
  - Toxicity to various agents [Recovered/Resolved]
  - Cough [Recovered/Resolved]
  - Sinus bradycardia [Recovered/Resolved]
  - Drug ineffective [Unknown]
